FAERS Safety Report 4853265-6 (Version None)
Quarter: 2005Q4

REPORT INFORMATION
  Report Type: 
  Country: None (occurrence: None)
  Receive Date: 20051214
  Receipt Date: 20051209
  Transmission Date: 20060501
  Serious: Yes (Other)
  Sender: FDA-Public Use
  Company Number: ES-SANOFI-SYNTHELABO-A01200508604

PATIENT
  Age: 73 Year
  Sex: Female

DRUGS (2)
  1. ELOXATIN [Suspect]
     Route: 042
     Dates: start: 20051027, end: 20051027
  2. GEMZAR [Suspect]
     Route: 042
     Dates: start: 20051027, end: 20051027

REACTIONS (1)
  - STRIDOR [None]
